FAERS Safety Report 19170357 (Version 1)
Quarter: 2021Q2

REPORT INFORMATION
  Report Type: Spontaneous
  Country: JP (occurrence: JP)
  Receive Date: 20210422
  Receipt Date: 20210422
  Transmission Date: 20210717
  Serious: Yes (Hospitalization, Other)
  Sender: FDA-Public Use
  Company Number: JP-SUN PHARMACEUTICAL INDUSTRIES LTD-2021R1-292658

PATIENT
  Age: 23 Year
  Sex: Female

DRUGS (4)
  1. KAMPO [Suspect]
     Active Substance: HERBALS
     Indication: ABDOMINAL PAIN LOWER
     Route: 065
  2. MOSAPRIDE CITRATE HYDRATE [Suspect]
     Active Substance: MOSAPRIDE CITRATE DIHYDRATE
     Indication: PRODUCT USED FOR UNKNOWN INDICATION
     Route: 065
  3. DAIKENCHUTO [Suspect]
     Active Substance: HERBALS
     Indication: ABDOMINAL PAIN LOWER
     Route: 065
  4. ACETAMINOPHEN. [Suspect]
     Active Substance: ACETAMINOPHEN
     Indication: PYREXIA
     Dosage: 200 MILLIGRAM , NINE DAYS BEFORE ADMISSION
     Route: 065

REACTIONS (1)
  - Renal tubular necrosis [Unknown]
